FAERS Safety Report 7296593-X (Version None)
Quarter: 2011Q1

REPORT INFORMATION
  Report Type: 
  Country: None (occurrence: None)
  Receive Date: 20110216
  Receipt Date: 20110207
  Transmission Date: 20110831
  Serious: Yes (Other)
  Sender: FDA-Public Use
  Company Number: PHHY2010ZA68094

PATIENT
  Age: 11 Year
  Sex: Female

DRUGS (1)
  1. RITALIN [Suspect]

REACTIONS (3)
  - INTRACRANIAL PRESSURE INCREASED [None]
  - HEADACHE [None]
  - STRABISMUS [None]
